FAERS Safety Report 11618050 (Version 1)
Quarter: 2015Q4

REPORT INFORMATION
  Report Type: Spontaneous
  Country: US (occurrence: US)
  Receive Date: 20151010
  Receipt Date: 20151010
  Transmission Date: 20160304
  Serious: No
  Sender: FDA-Public Use
  Company Number: US-B.I. PHARMACEUTICALS,INC./RIDGEFIELD-2015-BI-53110BP

PATIENT
  Age: 80 Year
  Sex: Male

DRUGS (1)
  1. MIRAPEX [Suspect]
     Active Substance: PRAMIPEXOLE DIHYDROCHLORIDE
     Indication: PARKINSON^S DISEASE
     Dosage: 3 MG
     Route: 048
     Dates: start: 2013

REACTIONS (5)
  - Bone loss [Unknown]
  - Gingival disorder [Unknown]
  - Tooth loss [Unknown]
  - Dry mouth [Unknown]
  - Abscess oral [Unknown]

NARRATIVE: CASE EVENT DATE: 201503
